FAERS Safety Report 8421881-0 (Version None)
Quarter: 2012Q2

REPORT INFORMATION
  Report Type: 
  Country: None (occurrence: None)
  Receive Date: 20120608
  Receipt Date: 20120605
  Transmission Date: 20120825
  Serious: Yes (Hospitalization, Other)
  Sender: FDA-Public Use
  Company Number: PHHY2011GB53109

PATIENT
  Age: 50 Year
  Sex: Female
  Weight: 137 kg

DRUGS (3)
  1. AMLODIPINE [Suspect]
     Dosage: 77 DF, UNK
  2. LOSARTAN [Suspect]
     Dosage: 104 DF, UNK
  3. HYPERINSULINAEMIA-EUGLYCAEMIA [Suspect]
     Dosage: 800 U/HR

REACTIONS (11)
  - HYPERKALAEMIA [None]
  - HYPOXIA [None]
  - HEART RATE INCREASED [None]
  - RENAL IMPAIRMENT [None]
  - ANURIA [None]
  - PULMONARY OEDEMA [None]
  - VOMITING [None]
  - BODY TEMPERATURE DECREASED [None]
  - METABOLIC ACIDOSIS [None]
  - HYPOTENSION [None]
  - OVERDOSE [None]
